FAERS Safety Report 6242491-X (Version None)
Quarter: 2009Q2

REPORT INFORMATION
  Report Type: 
  Country: None (occurrence: None)
  Receive Date: 20090624
  Receipt Date: 20090616
  Transmission Date: 20091009
  Serious: Yes (Other)
  Sender: FDA-Public Use
  Company Number: JP-ASTRAZENECA-2009SE03001

PATIENT
  Age: 70 Year
  Sex: Male

DRUGS (2)
  1. OMEPRAL [Suspect]
     Route: 041
  2. DIPRIVAN [Suspect]
     Indication: SEDATION
     Dosage: DOSE UNKNOWN
     Route: 042

REACTIONS (1)
  - INFUSION SITE PHLEBITIS [None]
